FAERS Safety Report 8358654-3 (Version None)
Quarter: 2012Q2

REPORT INFORMATION
  Report Type: 
  Country: None (occurrence: None)
  Receive Date: 20120514
  Receipt Date: 20120508
  Transmission Date: 20120825
  Serious: Yes (Hospitalization, Other)
  Sender: FDA-Public Use
  Company Number: US-MERCK-1102USA01360

PATIENT
  Age: 74 Year
  Sex: Female
  Weight: 65 kg

DRUGS (2)
  1. PREDNISONE [Concomitant]
     Route: 065
     Dates: start: 20010101
  2. FOSAMAX [Suspect]
     Indication: OSTEOPOROSIS
     Route: 048
     Dates: start: 20030101, end: 20100701

REACTIONS (19)
  - OSTEOMYELITIS CHRONIC [None]
  - ARTHRITIS [None]
  - SINUSITIS [None]
  - TOOTH DISORDER [None]
  - PNEUMONIA [None]
  - NERVE COMPRESSION [None]
  - BLOOD CHOLESTEROL INCREASED [None]
  - OSTEONECROSIS OF JAW [None]
  - ARTHROPATHY [None]
  - OXYGEN SATURATION DECREASED [None]
  - PSEUDOMONAS INFECTION [None]
  - BONE LOSS [None]
  - CONVULSION [None]
  - GASTRIC ULCER [None]
  - GLUCOCORTICOIDS ABNORMAL [None]
  - TOOTH INFECTION [None]
  - THYROID DISORDER [None]
  - RASH GENERALISED [None]
  - HYPERTENSION [None]
